FAERS Safety Report 13176965 (Version 2)
Quarter: 2017Q3

REPORT INFORMATION
  Report Type: Report from Study
  Country: US (occurrence: US)
  Receive Date: 20170201
  Receipt Date: 20170731
  Transmission Date: 20171127
  Serious: No
  Sender: FDA-Public Use
  Company Number: US-EXELIXIS-CABO-16006780

PATIENT
  Sex: Female

DRUGS (11)
  1. PREVACID [Concomitant]
     Active Substance: LANSOPRAZOLE
  2. CABOMETYX [Suspect]
     Active Substance: CABOZANTINIB S-MALATE
     Indication: RENAL CANCER
     Dosage: 60 MG, QD
     Route: 048
     Dates: start: 20160616, end: 201607
  3. OXYCODONE [Concomitant]
     Active Substance: OXYCODONE
  4. ELIQUIS [Concomitant]
     Active Substance: APIXABAN
  5. CABOMETYX [Suspect]
     Active Substance: CABOZANTINIB S-MALATE
     Indication: METASTASES TO BONE
     Dosage: 40 MG, QD
     Route: 048
     Dates: start: 20160817, end: 201610
  6. LORAZEPAM. [Concomitant]
     Active Substance: LORAZEPAM
  7. CABOMETYX [Suspect]
     Active Substance: CABOZANTINIB S-MALATE
     Dosage: 40 MG, QD
     Route: 048
     Dates: start: 201610, end: 201704
  8. CYMBALTA [Concomitant]
     Active Substance: DULOXETINE HYDROCHLORIDE
  9. CABOMETYX [Suspect]
     Active Substance: CABOZANTINIB S-MALATE
     Dosage: 40 MG, QOD
     Route: 048
     Dates: start: 201704
  10. OXYCONTIN [Concomitant]
     Active Substance: OXYCODONE HYDROCHLORIDE
  11. LISINOPRIL. [Concomitant]
     Active Substance: LISINOPRIL

REACTIONS (10)
  - Pain in jaw [Not Recovered/Not Resolved]
  - Oral pain [Unknown]
  - Gingival pain [Unknown]
  - Stomatitis [Unknown]
  - Vomiting [Not Recovered/Not Resolved]
  - Mouth haemorrhage [Unknown]
  - Fatigue [Unknown]
  - Oropharyngeal pain [Unknown]
  - Blister [Unknown]
  - Gingival bleeding [Not Recovered/Not Resolved]
